FAERS Safety Report 12521500 (Version 1)
Quarter: 2016Q3

REPORT INFORMATION
  Report Type: Spontaneous
  Country: SE (occurrence: SE)
  Receive Date: 20160701
  Receipt Date: 20160701
  Transmission Date: 20161109
  Serious: Yes (Other)
  Sender: FDA-Public Use
  Company Number: SE-BRACCO-000227

PATIENT
  Age: 33 Year
  Sex: Male

DRUGS (1)
  1. PROHANCE [Suspect]
     Active Substance: GADOTERIDOL
     Indication: NUCLEAR MAGNETIC RESONANCE IMAGING
     Route: 042
     Dates: start: 20160601, end: 20160601

REACTIONS (3)
  - Nausea [Unknown]
  - Cold sweat [Unknown]
  - Neurological symptom [Unknown]

NARRATIVE: CASE EVENT DATE: 20160601
